FAERS Safety Report 20245291 (Version 1)
Quarter: 2021Q4

REPORT INFORMATION
  Report Type: Spontaneous
  Country: NL (occurrence: NL)
  Receive Date: 20211229
  Receipt Date: 20211229
  Transmission Date: 20220303
  Serious: Yes (Other)
  Sender: FDA-Public Use
  Company Number: NL-BRISTOL-MYERS SQUIBB COMPANY-BMS-2021-091933

PATIENT
  Age: 46 Year
  Sex: Female

DRUGS (2)
  1. REMICADE [Suspect]
     Active Substance: INFLIXIMAB
     Indication: Inflammatory bowel disease
     Route: 042
  2. YERVOY [Suspect]
     Active Substance: IPILIMUMAB
     Indication: Metastatic malignant melanoma
     Dosage: UNAVAILABLE
     Route: 005

REACTIONS (9)
  - Uveitis [Unknown]
  - Inflammatory bowel disease [Unknown]
  - Vitiligo [Unknown]
  - Alopecia [Unknown]
  - Thyroid disorder [Unknown]
  - Eye infection [Unknown]
  - Hypersensitivity [Unknown]
  - Pruritus [Unknown]
  - Diarrhoea [Unknown]
